FAERS Safety Report 10004193 (Version 1)
Quarter: 2014Q1

REPORT INFORMATION
  Report Type: Spontaneous
  Country: US (occurrence: US)
  Receive Date: 20140312
  Receipt Date: 20140312
  Transmission Date: 20141002
  Serious: No
  Sender: FDA-Public Use
  Company Number: US-LUNDBECK-DKLU1094861

PATIENT
  Sex: Male

DRUGS (1)
  1. ONFI (ORAL SUSPENSION) [Suspect]
     Indication: EPILEPSY
     Route: 048
     Dates: start: 20131010

REACTIONS (1)
  - Increased bronchial secretion [Unknown]
